FAERS Safety Report 18344686 (Version 1)
Quarter: 2020Q4

REPORT INFORMATION
  Report Type: Spontaneous
  Country: US (occurrence: US)
  Receive Date: 20201005
  Receipt Date: 20201005
  Transmission Date: 20210114
  Serious: Yes (Other)
  Sender: FDA-Public Use
  Company Number: US-PFIZER INC-2020377438

PATIENT
  Age: 73 Year
  Sex: Female
  Weight: 107 kg

DRUGS (3)
  1. IBRANCE [Suspect]
     Active Substance: PALBOCICLIB
     Indication: BREAST CANCER STAGE IV
     Dosage: 100 MG, CYCLIC (100MG CAPSULE BY MOUTH ONCE A DAY FOR THREE WEEKS AND ONE WEEK OFF )
     Route: 048
     Dates: start: 201904
  2. LETROZOLE. [Concomitant]
     Active Substance: LETROZOLE
     Dosage: 2.5 MG, DAILY (EVERY DAY)
     Dates: start: 201904
  3. CELEBREX [Concomitant]
     Active Substance: CELECOXIB
     Indication: ARTHRITIS
     Dosage: UNK

REACTIONS (3)
  - Neoplasm progression [Unknown]
  - Cancer pain [Unknown]
  - Pleural effusion [Unknown]
